FAERS Safety Report 21748933 (Version 2)
Quarter: 2023Q1

REPORT INFORMATION
  Report Type: Spontaneous
  Country: US (occurrence: US)
  Receive Date: 20221219
  Receipt Date: 20230117
  Transmission Date: 20230417
  Serious: Yes (Other)
  Sender: FDA-Public Use
  Company Number: None

PATIENT
  Age: 49 Year
  Sex: Female

DRUGS (2)
  1. DOXERCALCIFEROL [Suspect]
     Active Substance: DOXERCALCIFEROL
     Indication: Secondary hyperthyroidism
     Dosage: 4 MCG PER 2 ML
     Route: 042
     Dates: start: 20221119, end: 20221122
  2. DOXERCALCIFEROL [Suspect]
     Active Substance: DOXERCALCIFEROL
     Route: 042
     Dates: start: 20221123, end: 20221123

REACTIONS (4)
  - Unresponsive to stimuli [Recovered/Resolved]
  - Feeling abnormal [Recovered/Resolved]
  - Chest discomfort [Recovered/Resolved]
  - Dyspnoea [Recovered/Resolved]

NARRATIVE: CASE EVENT DATE: 20221123
